FAERS Safety Report 22127800 (Version 1)
Quarter: 2023Q1

REPORT INFORMATION
  Report Type: Spontaneous
  Country: GB (occurrence: None)
  Receive Date: 20230323
  Receipt Date: 20230323
  Transmission Date: 20230417
  Serious: Yes (Other)
  Sender: FDA-Public Use
  Company Number: GB-ROCHE-3295652

PATIENT
  Age: 74 Year
  Sex: Male
  Weight: 71 kg

DRUGS (15)
  1. RITUXIMAB [Suspect]
     Active Substance: RITUXIMAB
     Indication: Diffuse large B-cell lymphoma
     Route: 042
     Dates: start: 20201016, end: 20210129
  2. RITUXIMAB [Suspect]
     Active Substance: RITUXIMAB
     Route: 042
     Dates: start: 20210201, end: 20210219
  3. RITUXIMAB [Suspect]
     Active Substance: RITUXIMAB
     Route: 042
     Dates: start: 20220407, end: 20220421
  4. RITUXIMAB [Suspect]
     Active Substance: RITUXIMAB
     Indication: Diffuse large B-cell lymphoma
     Dosage: 1400 MG SUBCUTANEOUS FROM CYCLE 2, RECEIVED FURTHER 3 DOSES /FEB/2022 TO /APR/2022 WITH SUBSEQUENT C
     Route: 058
  5. RITUXIMAB [Suspect]
     Active Substance: RITUXIMAB
     Dosage: 1400 MG SUBCUTANEOUS FROM CYCLE 2, RECEIVED FURTHER 3 DOSES /FEB/2022 TO /APR/2022 WITH SUBSEQUENT C
     Route: 058
     Dates: start: 202202, end: 202204
  6. GEMCITABINE [Suspect]
     Active Substance: GEMCITABINE
     Indication: Diffuse large B-cell lymphoma recurrent
     Route: 065
     Dates: start: 20210201, end: 20210219
  7. GEMCITABINE [Suspect]
     Active Substance: GEMCITABINE
     Route: 042
     Dates: start: 20220204, end: 20220304
  8. OXALIPLATIN [Suspect]
     Active Substance: OXALIPLATIN
     Indication: Diffuse large B-cell lymphoma recurrent
     Route: 065
     Dates: start: 20210201, end: 20210219
  9. OXALIPLATIN [Suspect]
     Active Substance: OXALIPLATIN
     Route: 042
     Dates: start: 20220204, end: 20220304
  10. BENDAMUSTINE [Concomitant]
     Active Substance: BENDAMUSTINE
     Indication: Diffuse large B-cell lymphoma recurrent
     Dosage: ON DAYS 1 AND 2
     Route: 042
     Dates: start: 20220407, end: 20220408
  11. PREDNISOLONE [Concomitant]
     Active Substance: PREDNISOLONE
     Indication: Diffuse large B-cell lymphoma
     Route: 048
     Dates: start: 20201016, end: 20210201
  12. POLATUZUMAB VEDOTIN [Concomitant]
     Active Substance: POLATUZUMAB VEDOTIN
     Indication: Diffuse large B-cell lymphoma recurrent
     Route: 042
     Dates: start: 20220407, end: 20220408
  13. CYCLOPHOSPHAMIDE [Concomitant]
     Active Substance: CYCLOPHOSPHAMIDE
     Indication: Diffuse large B-cell lymphoma
     Route: 042
     Dates: start: 20201016, end: 20210201
  14. DOXORUBICIN [Concomitant]
     Active Substance: DOXORUBICIN
     Indication: Diffuse large B-cell lymphoma
     Dosage: RECEIVED DOSE ON 01/FEB/2021
     Route: 042
     Dates: start: 20201016, end: 20210201
  15. VINCRISTINE [Concomitant]
     Active Substance: VINCRISTINE
     Indication: Diffuse large B-cell lymphoma
     Dosage: RECEIVED DOSE ON 01/FEB/2021
     Route: 042
     Dates: start: 20201016, end: 20210201

REACTIONS (1)
  - Disease progression [Unknown]
